FAERS Safety Report 23381634 (Version 1)
Quarter: 2024Q1

REPORT INFORMATION
  Report Type: Spontaneous
  Country: RO (occurrence: RO)
  Receive Date: 20240109
  Receipt Date: 20240109
  Transmission Date: 20240410
  Serious: Yes (Hospitalization, Other)
  Sender: FDA-Public Use
  Company Number: RO-CELLTRION INC.-2024RO000205

PATIENT

DRUGS (4)
  1. RITUXIMAB [Suspect]
     Active Substance: RITUXIMAB
     Indication: Product used for unknown indication
  2. HUMIRA [Suspect]
     Active Substance: ADALIMUMAB
     Indication: Rheumatoid arthritis
     Dosage: 40 MG
     Route: 058
  3. METOTREXAT [METHOTREXATE SODIUM] [Concomitant]
     Indication: Product used for unknown indication
     Dosage: 10 MG/WEEK
  4. ARAVA [Concomitant]
     Active Substance: LEFLUNOMIDE
     Indication: Product used for unknown indication
     Dosage: 20 MILLIGRAM

REACTIONS (11)
  - Multisystem inflammatory syndrome [Unknown]
  - Osteoarthritis [Unknown]
  - Disease recurrence [Recovered/Resolved]
  - Investigation abnormal [Unknown]
  - Dermatitis psoriasiform [Recovered/Resolved]
  - Skin lesion [Unknown]
  - Blood cholesterol increased [Unknown]
  - Arthralgia [Unknown]
  - Alopecia [Unknown]
  - Joint swelling [Recovered/Resolved]
  - Therapeutic product effect decreased [Unknown]

NARRATIVE: CASE EVENT DATE: 20231101
